FAERS Safety Report 11844037 (Version 1)
Quarter: 2015Q4

REPORT INFORMATION
  Report Type: Other
  Country: CA (occurrence: CA)
  Receive Date: 20151217
  Receipt Date: 20151217
  Transmission Date: 20160305
  Serious: Yes (Other)
  Sender: FDA-Public Use
  Company Number: CA-TARO PHARMACEUTICALS USA.,INC-2015SUN02293

PATIENT
  Age: 32 Year
  Sex: Female
  Weight: 45 kg

DRUGS (1)
  1. TARO-CLOBETASOL CREAM 0.05% [Suspect]
     Active Substance: CLOBETASOL
     Dosage: 50 G, 1 EVERY 2 WEEKS
     Route: 061

REACTIONS (7)
  - Pruritus [Recovering/Resolving]
  - Insomnia [Recovering/Resolving]
  - Prurigo [Recovering/Resolving]
  - Agitation [Recovering/Resolving]
  - Erythema [Recovering/Resolving]
  - Eczema [Recovering/Resolving]
  - Condition aggravated [Recovering/Resolving]
